FAERS Safety Report 6711240-0 (Version None)
Quarter: 2010Q2

REPORT INFORMATION
  Report Type: 
  Country: None (occurrence: None)
  Receive Date: 20100427
  Receipt Date: 20090512
  Transmission Date: 20101027
  Serious: Yes (Other)
  Sender: FDA-Public Use
  Company Number: 60193

PATIENT
  Sex: Male

DRUGS (7)
  1. LEUCOVORIN CALCIUM [Suspect]
     Indication: METASTATIC NEOPLASM
     Dosage: 700MG (400MG/M2)
     Dates: start: 20090427, end: 20090511
  2. LEUCOVORIN CALCIUM [Suspect]
     Indication: METASTATIC NEOPLASM
     Dosage: 700MG (400MG/M2) : LAST WEEK
  3. FLUOROURACIL [Concomitant]
  4. AVASTIN [Concomitant]
  5. DECADRON SRC [Concomitant]
  6. RESTORIL [Concomitant]
  7. ADVIL [Concomitant]

REACTIONS (3)
  - CHEST DISCOMFORT [None]
  - ERYTHEMA [None]
  - HYPERHIDROSIS [None]
